FAERS Safety Report 9805740 (Version 1)
Quarter: 2014Q1

REPORT INFORMATION
  Report Type: Spontaneous
  Country: US (occurrence: None)
  Receive Date: 20140108
  Receipt Date: 20140108
  Transmission Date: 20141002
  Serious: No
  Sender: FDA-Public Use
  Company Number: None

PATIENT
  Age: 67 Year
  Sex: Male
  Weight: 103.7 kg

DRUGS (1)
  1. RITUXIMAB [Suspect]
     Route: 042
     Dates: start: 20131002, end: 20131002

REACTIONS (3)
  - Hypotension [None]
  - Flushing [None]
  - Dizziness [None]
